FAERS Safety Report 6397748-9 (Version None)
Quarter: 2009Q4

REPORT INFORMATION
  Report Type: 
  Country: None (occurrence: None)
  Receive Date: 20091012
  Receipt Date: 20090930
  Transmission Date: 20100525
  Serious: Yes (Other)
  Sender: FDA-Public Use
  Company Number: GB-ELI_LILLY_AND_COMPANY-GB200909006942

PATIENT
  Age: 54 Year
  Sex: Female
  Weight: 61 kg

DRUGS (5)
  1. ALIMTA [Suspect]
     Indication: NON-SMALL CELL LUNG CANCER
     Dosage: 825 MG, UNKNOWN
     Route: 042
     Dates: start: 20090605
  2. AMITRIPTYLINE [Concomitant]
     Indication: PAIN
     Dosage: 20 MG, UNKNOWN
     Route: 048
     Dates: start: 20080101
  3. DEXAMETHASONE 0.5MG TAB [Concomitant]
     Indication: PROPHYLAXIS OF NAUSEA AND VOMITING
     Dosage: 8 MG, 2/D
     Route: 048
     Dates: start: 20090604, end: 20090808
  4. FOLIC ACID [Concomitant]
     Indication: PREMEDICATION
     Dosage: 400 UG, UNKNOWN
     Route: 048
     Dates: start: 20090529, end: 20090713
  5. DOCUSATE SODIUM [Concomitant]
     Indication: CONSTIPATION
     Dosage: UNK, UNKNOWN
     Route: 048
     Dates: start: 20080101

REACTIONS (2)
  - BLOOD ALKALINE PHOSPHATASE INCREASED [None]
  - GAMMA-GLUTAMYLTRANSFERASE INCREASED [None]
